FAERS Safety Report 10476100 (Version 2)
Quarter: 2014Q4

REPORT INFORMATION
  Report Type: Spontaneous
  Country: US (occurrence: US)
  Receive Date: 20140925
  Receipt Date: 20141104
  Transmission Date: 20150528
  Serious: No
  Sender: FDA-Public Use
  Company Number: US-009507513-1409USA012792

PATIENT
  Age: 20 Year
  Sex: Female
  Weight: 97.96 kg

DRUGS (2)
  1. NEXPLANON [Suspect]
     Active Substance: ETONOGESTREL
     Indication: CONTRACEPTION
  2. NEXPLANON [Suspect]
     Active Substance: ETONOGESTREL
     Indication: CONTRACEPTION
     Dosage: ONE ROD INSERTED EVERY THREE YEARS; 68 MG
     Route: 059
     Dates: start: 20140904, end: 20141003

REACTIONS (8)
  - Malaise [Recovered/Resolved]
  - Movement disorder [Unknown]
  - Implant site infection [Recovered/Resolved]
  - Pain in extremity [Unknown]
  - Vomiting [Recovered/Resolved]
  - Wound [Recovered/Resolved]
  - Nausea [Recovered/Resolved]
  - Headache [Recovered/Resolved]

NARRATIVE: CASE EVENT DATE: 201409
